FAERS Safety Report 7604606-8 (Version None)
Quarter: 2011Q3

REPORT INFORMATION
  Report Type: 
  Country: None (occurrence: None)
  Receive Date: 20110712
  Receipt Date: 20110629
  Transmission Date: 20111222
  Serious: Yes (Hospitalization)
  Sender: FDA-Public Use
  Company Number: US-SANOFI-AVENTIS-2011SA043858

PATIENT

DRUGS (2)
  1. ASPIRIN [Suspect]
     Route: 065
  2. LANTUS [Suspect]
     Route: 058

REACTIONS (1)
  - HOSPITALISATION [None]
